FAERS Safety Report 10756561 (Version 1)
Quarter: 2015Q1

REPORT INFORMATION
  Report Type: Spontaneous
  Country: US (occurrence: US)
  Receive Date: 20150202
  Receipt Date: 20150202
  Transmission Date: 20150721
  Serious: No
  Sender: FDA-Public Use
  Company Number: US-BAUSCH-SYM-2013-14161

PATIENT
  Age: 56 Year
  Sex: Female
  Weight: 80.36 kg

DRUGS (1)
  1. XENAZINE [Suspect]
     Active Substance: TETRABENAZINE
     Indication: HUNTINGTON^S DISEASE
     Route: 048
     Dates: start: 20131211

REACTIONS (11)
  - Gait disturbance [Recovering/Resolving]
  - Agitation [Recovering/Resolving]
  - Restless legs syndrome [Recovered/Resolved]
  - Crying [Recovering/Resolving]
  - Photophobia [Recovering/Resolving]
  - Fall [Recovering/Resolving]
  - Abdominal pain upper [Recovered/Resolved]
  - Vision blurred [Recovering/Resolving]
  - Pain [Recovering/Resolving]
  - Headache [Recovering/Resolving]
  - Dry eye [Recovering/Resolving]

NARRATIVE: CASE EVENT DATE: 20131211
